FAERS Safety Report 9436520 (Version 1)
Quarter: 2013Q3

REPORT INFORMATION
  Report Type: Spontaneous
  Country: US (occurrence: US)
  Receive Date: 20130802
  Receipt Date: 20130802
  Transmission Date: 20140515
  Serious: No
  Sender: FDA-Public Use
  Company Number: US-OPTIMER-20130076

PATIENT
  Age: 10 Year
  Sex: Male

DRUGS (5)
  1. FIDAXOMICIN [Suspect]
     Indication: CLOSTRIDIAL INFECTION
     Dosage: 200 MG, BID
     Route: 050
  2. FIDAXOMICIN [Suspect]
     Dosage: UNK
     Route: 050
  3. CLARITHROMYCIN [Suspect]
     Indication: PNEUMONIA
     Route: 065
  4. VANCOMYCIN [Concomitant]
     Indication: CLOSTRIDIUM DIFFICILE COLITIS
     Dosage: UNK
     Route: 048
  5. VANCOMYCIN [Concomitant]
     Dosage: UNK
     Route: 048

REACTIONS (4)
  - Pneumonia [Unknown]
  - Clostridium difficile infection [Recovered/Resolved]
  - Disease recurrence [Recovered/Resolved]
  - Off label use [Unknown]
